FAERS Safety Report 4332915-7 (Version None)
Quarter: 2004Q2

REPORT INFORMATION
  Report Type: 
  Country: None (occurrence: None)
  Receive Date: 20040406
  Receipt Date: 20040331
  Transmission Date: 20050107
  Serious: Yes (Hospitalization)
  Sender: FDA-Public Use
  Company Number: 200413679GDDC

PATIENT
  Age: 15 Year
  Sex: Female
  Weight: 49 kg

DRUGS (2)
  1. LANTUS [Suspect]
     Indication: DIABETES MELLITUS
     Dosage: DOSE UNIT: UNITS
     Route: 058
     Dates: start: 20030924
  2. ACTRAPID HM [Concomitant]
     Indication: DIABETES MELLITUS
     Dosage: DOSE: 12/10/11; DOSE UNIT: UNITS
     Route: 058

REACTIONS (5)
  - CARBUNCLE [None]
  - LYMPH NODE ABSCESS [None]
  - LYMPH NODE PAIN [None]
  - SKIN NODULE [None]
  - WOUND [None]
